FAERS Safety Report 24194074 (Version 1)
Quarter: 2024Q3

REPORT INFORMATION
  Report Type: Spontaneous
  Country: US (occurrence: US)
  Receive Date: 20240809
  Receipt Date: 20240809
  Transmission Date: 20241017
  Serious: No
  Sender: KARYOPHARM THERAPEUTICS
  Company Number: US-KARYOPHARM-2024KPT001201

PATIENT

DRUGS (5)
  1. XPOVIO [Suspect]
     Active Substance: SELINEXOR
     Indication: Malignant neoplasm of unknown primary site
     Dosage: 80 MG, WEEKLY
     Route: 048
     Dates: start: 20240614
  2. ACYCLOVIR [Concomitant]
     Active Substance: ACYCLOVIR
  3. EMEND [Concomitant]
     Active Substance: APREPITANT
  4. KYPROLIS [Concomitant]
     Active Substance: CARFILZOMIB
  5. LASIX [Concomitant]
     Active Substance: FUROSEMIDE

REACTIONS (5)
  - Bradycardia [Not Recovered/Not Resolved]
  - Palpitations [Unknown]
  - Taste disorder [Not Recovered/Not Resolved]
  - Dysgeusia [Unknown]
  - Decreased appetite [Unknown]

NARRATIVE: CASE EVENT DATE: 20240601
